FAERS Safety Report 20243962 (Version 1)
Quarter: 2021Q4

REPORT INFORMATION
  Report Type: Spontaneous
  Country: US (occurrence: US)
  Receive Date: 20211228
  Receipt Date: 20211228
  Transmission Date: 20220303
  Serious: Yes (Other)
  Sender: FDA-Public Use
  Company Number: US-COOPERSURGICAL, INC.-US-2021CPS002062

PATIENT
  Age: 27 Year
  Sex: Female
  Weight: 92.517 kg

DRUGS (3)
  1. PARAGARD T 380A [Suspect]
     Active Substance: COPPER
     Indication: Contraception
     Dosage: UNK
     Route: 015
     Dates: start: 20210611, end: 20210716
  2. KETOROLAC [Concomitant]
     Active Substance: KETOROLAC TROMETHAMINE
     Indication: Product used for unknown indication
     Dosage: 10 MG, UNK
     Route: 065
  3. VITAMINS                           /00067501/ [Concomitant]
     Indication: Nutritional supplementation
     Dosage: UNK
     Route: 065

REACTIONS (2)
  - Embedded device [Recovered/Resolved]
  - Device expulsion [Recovered/Resolved]

NARRATIVE: CASE EVENT DATE: 20210611
